FAERS Safety Report 6321594-5 (Version None)
Quarter: 2009Q3

REPORT INFORMATION
  Report Type: 
  Country: None (occurrence: None)
  Receive Date: 20090824
  Receipt Date: 20090812
  Transmission Date: 20100115
  Serious: Yes (Hospitalization)
  Sender: FDA-Public Use
  Company Number: CA-JNJFOC-20090606431

PATIENT
  Sex: Male
  Weight: 62.4 kg

DRUGS (5)
  1. REMICADE [Suspect]
     Dosage: 2ND INFUSION
     Route: 042
     Dates: start: 20090604
  2. REMICADE [Suspect]
     Indication: COLITIS ULCERATIVE
     Route: 042
     Dates: start: 20090604
  3. PREDNISONE [Concomitant]
     Indication: COLITIS ULCERATIVE
     Route: 048
  4. CALTRATE [Concomitant]
  5. IRON [Concomitant]

REACTIONS (7)
  - ASTHENIA [None]
  - DECREASED APPETITE [None]
  - FATIGUE [None]
  - ILEOSTOMY [None]
  - MUSCULAR WEAKNESS [None]
  - PYREXIA [None]
  - WEIGHT DECREASED [None]
